FAERS Safety Report 10696615 (Version 1)
Quarter: 2015Q1

REPORT INFORMATION
  Report Type: Spontaneous
  Country: FR (occurrence: FR)
  Receive Date: 20150107
  Receipt Date: 20150107
  Transmission Date: 20150721
  Serious: Yes (Other)
  Sender: FDA-Public Use
  Company Number: FR-BRISTOL-MYERS SQUIBB COMPANY-BMS-2014-005624

PATIENT
  Age: 57 Year
  Sex: Female

DRUGS (4)
  1. NORVIR [Suspect]
     Active Substance: RITONAVIR
     Indication: PRODUCT USED FOR UNKNOWN INDICATION
     Dosage: 100 MG, QD
     Route: 048
  2. ZIAGEN [Concomitant]
     Active Substance: ABACAVIR SULFATE
  3. REYATAZ [Suspect]
     Active Substance: ATAZANAVIR SULFATE
     Indication: PRODUCT USED FOR UNKNOWN INDICATION
     Dosage: 300 MG, QD
     Route: 065
  4. VIDEX [Concomitant]
     Active Substance: DIDANOSINE

REACTIONS (2)
  - Calculus urinary [Recovered/Resolved with Sequelae]
  - Renal atrophy [Recovered/Resolved with Sequelae]

NARRATIVE: CASE EVENT DATE: 201312
